FAERS Safety Report 16808900 (Version 1)
Quarter: 2019Q3

REPORT INFORMATION
  Report Type: Spontaneous
  Country: US (occurrence: US)
  Receive Date: 20190724
  Receipt Date: 20190724
  Transmission Date: 20191005
  Serious: No
  Sender: FDA-Public Use
  Company Number: None

PATIENT

DRUGS (1)
  1. AMIODARONE TABLETS [Suspect]
     Active Substance: AMIODARONE
     Route: 048

REACTIONS (7)
  - Lung infiltration [None]
  - Lung consolidation [None]
  - Drug monitoring procedure incorrectly performed [None]
  - Liver function test increased [None]
  - Lung disorder [None]
  - Fatigue [None]
  - Incorrect dose administered [None]
